FAERS Safety Report 8014452-1 (Version None)
Quarter: 2011Q4

REPORT INFORMATION
  Report Type: 
  Country: None (occurrence: None)
  Receive Date: 20111229
  Receipt Date: 20111229
  Transmission Date: 20120403
  Serious: Yes (Hospitalization)
  Sender: FDA-Public Use
  Company Number: FR-AMGEN-FRASP2011067331

PATIENT
  Age: 22 Year
  Sex: Female

DRUGS (3)
  1. MABTHERA [Suspect]
     Indication: IDIOPATHIC THROMBOCYTOPENIC PURPURA
     Dosage: UNK
     Dates: start: 20110722, end: 20111007
  2. CYCLOSPORINE [Suspect]
     Indication: BONE MARROW FAILURE
     Dosage: UNK
     Dates: start: 20110601
  3. NPLATE [Suspect]
     Indication: IDIOPATHIC THROMBOCYTOPENIC PURPURA
     Dosage: 500 MG, QWK
     Dates: start: 20110917

REACTIONS (1)
  - GUILLAIN-BARRE SYNDROME [None]
